FAERS Safety Report 9100084 (Version 2)
Quarter: 2013Q2

REPORT INFORMATION
  Report Type: Spontaneous
  Country: US (occurrence: US)
  Receive Date: 20130215
  Receipt Date: 20130402
  Transmission Date: 20140414
  Serious: Yes (Other)
  Sender: FDA-Public Use
  Company Number: US-PFIZER INC-2013057426

PATIENT
  Age: 57 Year
  Sex: Female
  Weight: 81.63 kg

DRUGS (21)
  1. DETROL LA [Suspect]
     Indication: HYPERTONIC BLADDER
     Dosage: 4 MG, 1X/DAY
     Route: 048
     Dates: start: 2012, end: 20130219
  2. DETROL LA [Suspect]
     Indication: STRESS URINARY INCONTINENCE
  3. CELEXA [Concomitant]
     Dosage: 40 MG, 1X/DAY
     Route: 048
     Dates: start: 20120920
  4. NEURONTIN [Concomitant]
     Dosage: UNK
  5. FLUCONAZOLE [Concomitant]
     Indication: ONYCHOMYCOSIS
     Dosage: 200 MG, 1X/DAY
     Route: 048
  6. SIMVASTATIN [Concomitant]
     Dosage: 40 MG, 1X/DAY
     Route: 048
  7. KLOR-CON [Concomitant]
     Dosage: 20 MEQ, 1X/DAY
  8. PREVACID OTC [Concomitant]
     Dosage: 15 MG, 1X/DAY
     Route: 048
  9. SYMBICORT [Concomitant]
     Dosage: 160 MCG-4.5 MCH/INH; ONE INHALATION DAILY
     Route: 055
  10. SPIRIVA [Concomitant]
     Dosage: 18 UG, 1X/DAY
     Route: 055
  11. SPIRONOLACTONE [Concomitant]
     Dosage: 25 MG, 1X/DAY
     Route: 048
  12. LYRICA [Concomitant]
     Dosage: 75 MG, 1X/DAY
     Route: 048
     Dates: start: 20120920
  13. COUMADIN [Concomitant]
     Dosage: 3 MG, 1X/DAY
     Route: 048
     Dates: start: 20120723, end: 20120813
  14. COUMADIN [Concomitant]
     Dosage: 4 MG ONCE AT BEDTIME (TUESDAY THURSDAY, SATURDAY AND SUNDAY)
     Route: 048
     Dates: start: 20130311
  15. COUMADIN [Concomitant]
     Dosage: 5 MG, 1X/DAY
     Route: 048
     Dates: start: 20130311
  16. COUMADIN [Concomitant]
     Dosage: 1 MG, 2 Q DAY
     Route: 048
     Dates: start: 20120820, end: 20130108
  17. PLAQUENIL [Concomitant]
     Dosage: 200 MG, 2X/DAY
     Route: 048
  18. LEVOTHYROXINE SODIUM [Concomitant]
     Dosage: 175 UG, 1X/DAY, 1 HR BEFORE FIRST FOOD OR DRINK
     Route: 048
     Dates: start: 20130205
  19. LEVOTHYROXINE SODIUM [Concomitant]
     Dosage: 125 UG, 1X/DAY 1HR BEFORE FIRST FOOD OR DRINK
     Route: 048
     Dates: start: 20130205
  20. TOPROL XL [Concomitant]
     Dosage: 50 MG, 1X/DAY
     Route: 048
  21. AZITHROMYCIN [Concomitant]
     Dosage: 250 MG, UNK
     Route: 048
     Dates: start: 20130130, end: 20130203

REACTIONS (2)
  - Cerebrovascular accident [Unknown]
  - Dysgeusia [Not Recovered/Not Resolved]
